FAERS Safety Report 4477589-X (Version None)
Quarter: 2004Q4

REPORT INFORMATION
  Report Type: 
  Country: None (occurrence: None)
  Receive Date: 20041012
  Receipt Date: 20041001
  Transmission Date: 20050328
  Serious: Yes (Other)
  Sender: FDA-Public Use
  Company Number: 163-20785-04100105

PATIENT
  Sex: 0

DRUGS (1)
  1. THALOMID [Suspect]
     Indication: FOLLICLE CENTRE LYMPHOMA, FOLLICULAR GRADE I, II, III
     Dosage: 200 MG FOR 1-2 WEEKS, TITRATE UPWARD BY 100MG EVERY 1-2 WEEKS UNTIL 800MG DAILY.

REACTIONS (8)
  - AGITATION [None]
  - ANXIETY [None]
  - MOOD ALTERED [None]
  - NEUTROPENIA [None]
  - PAIN [None]
  - PLEURAL EFFUSION [None]
  - PNEUMONITIS [None]
  - PYREXIA [None]
